FAERS Safety Report 5804104-8 (Version None)
Quarter: 2008Q3

REPORT INFORMATION
  Report Type: 
  Country: None (occurrence: None)
  Receive Date: 20080707
  Receipt Date: 20080707
  Transmission Date: 20090109
  Serious: Yes (Hospitalization, Other)
  Sender: FDA-Public Use
  Company Number: None

PATIENT
  Sex: Male
  Weight: 68.0396 kg

DRUGS (1)
  1. METHYLPREDNISOLONE [Suspect]
     Indication: DYSPNOEA
     Dosage: 21 TABLETS  1-6 DAYS
     Dates: start: 20080412, end: 20080414

REACTIONS (11)
  - ASTHENIA [None]
  - CHILLS [None]
  - DIZZINESS [None]
  - DYSPNOEA [None]
  - FEELING ABNORMAL [None]
  - HEART RATE IRREGULAR [None]
  - INSOMNIA [None]
  - PRURITUS [None]
  - SWELLING FACE [None]
  - TINNITUS [None]
  - VISUAL IMPAIRMENT [None]
